FAERS Safety Report 7804328-4 (Version None)
Quarter: 2011Q4

REPORT INFORMATION
  Report Type: 
  Country: None (occurrence: None)
  Receive Date: 20111010
  Receipt Date: 20111004
  Transmission Date: 20120403
  Serious: Yes (Life-Threatening, Hospitalization)
  Sender: FDA-Public Use
  Company Number: FR-BRISTOL-MYERS SQUIBB COMPANY-16134553

PATIENT
  Age: 54 Year
  Sex: Male

DRUGS (7)
  1. ASPIRIN [Concomitant]
     Dates: start: 20110101
  2. SPRYCEL [Suspect]
     Indication: CHRONIC MYELOID LEUKAEMIA
     Route: 048
     Dates: start: 20110701, end: 20110901
  3. TASIGNA [Concomitant]
     Dates: end: 20110607
  4. ATORVASTATIN CALCIUM [Concomitant]
  5. IBUPROFEN [Concomitant]
     Indication: OSTEOARTHRITIS
  6. LERCANIDIPINE [Concomitant]
     Indication: HYPERTENSION
     Dates: start: 20101101
  7. PLAVIX [Concomitant]
     Dates: start: 20110520

REACTIONS (1)
  - ISCHAEMIC STROKE [None]
